FAERS Safety Report 8241457-8 (Version None)
Quarter: 2012Q1

REPORT INFORMATION
  Report Type: 
  Country: None (occurrence: None)
  Receive Date: 20120328
  Receipt Date: 20120315
  Transmission Date: 20120608
  Serious: Yes (Hospitalization, Other)
  Sender: FDA-Public Use
  Company Number: BE-ELI_LILLY_AND_COMPANY-BE201203003540

PATIENT
  Sex: Female

DRUGS (4)
  1. ESCITALOPRAM OXALATE [Concomitant]
     Dosage: 20 MG, UNK
     Route: 048
  2. ABILIFY [Concomitant]
     Dosage: 10 MG, UNK
     Route: 048
  3. LEVOTHYROXINE SODIUM [Concomitant]
     Dosage: 150 UG, UNK
     Route: 048
  4. OLANZAPINE [Suspect]
     Indication: SCHIZOAFFECTIVE DISORDER
     Dosage: 405 MG, MONTHLY (1/M)
     Route: 030

REACTIONS (8)
  - DIZZINESS [None]
  - DISORIENTATION [None]
  - CONFUSIONAL STATE [None]
  - AMNESIA [None]
  - DYSARTHRIA [None]
  - SEDATION [None]
  - ASTHENIA [None]
  - SOMNOLENCE [None]
